FAERS Safety Report 6744036-4 (Version None)
Quarter: 2010Q2

REPORT INFORMATION
  Report Type: 
  Country: None (occurrence: None)
  Receive Date: 20100527
  Receipt Date: 20100519
  Transmission Date: 20101027
  Serious: Yes (Death, Hospitalization)
  Sender: FDA-Public Use
  Company Number: A0790042A

PATIENT
  Age: 51 Year
  Sex: Male

DRUGS (1)
  1. AVANDAMET [Suspect]
     Dosage: 2TAB PER DAY
     Dates: start: 20051001, end: 20051129

REACTIONS (11)
  - ASTHENIA [None]
  - DEPRESSION [None]
  - DIABETES MELLITUS INADEQUATE CONTROL [None]
  - DYSPNOEA [None]
  - HYPOGLYCAEMIC COMA [None]
  - MACULAR OEDEMA [None]
  - MALIGNANT HYPERTENSION [None]
  - PERIPHERAL VASCULAR DISORDER [None]
  - PULMONARY EMBOLISM [None]
  - SWELLING [None]
  - VISION BLURRED [None]
